FAERS Safety Report 6649203-6 (Version None)
Quarter: 2010Q1

REPORT INFORMATION
  Report Type: 
  Country: None (occurrence: None)
  Receive Date: 20100324
  Receipt Date: 20100312
  Transmission Date: 20100710
  Serious: Yes (Other)
  Sender: FDA-Public Use
  Company Number: B0642189A

PATIENT
  Sex: Male

DRUGS (4)
  1. REQUIP CR [Suspect]
     Indication: PARKINSON'S DISEASE
     Route: 048
     Dates: start: 20090728
  2. EXELON [Concomitant]
     Dosage: 4.5MG PER DAY
     Route: 048
  3. ALFUZOSIN HCL [Concomitant]
     Route: 048
  4. HJERTEMAGNYL [Concomitant]
     Route: 048

REACTIONS (6)
  - AGITATION [None]
  - ANXIETY [None]
  - DIZZINESS [None]
  - HALLUCINATION [None]
  - HEAD DISCOMFORT [None]
  - URTICARIA [None]
